FAERS Safety Report 9255770 (Version 1)
Quarter: 2013Q2

REPORT INFORMATION
  Report Type: Report from Study
  Country: DE (occurrence: DE)
  Receive Date: 20130425
  Receipt Date: 20130425
  Transmission Date: 20140414
  Serious: Yes (Hospitalization)
  Sender: FDA-Public Use
  Company Number: DE-BAYER-2013-014980

PATIENT
  Age: 55 Year
  Sex: Female

DRUGS (5)
  1. SORAFENIB (RAF KINASE INHIBITOR) [Suspect]
     Indication: BREAST CANCER METASTATIC
     Dosage: 600 MG, DAILY
     Dates: start: 20120503, end: 20130110
  2. PACLITAXEL [Suspect]
     Indication: BREAST CANCER METASTATIC
     Dosage: 156 MG ON DAY 1, 8 AND 15, EVERY 28 DAYS.
     Dates: start: 20120503, end: 20130103
  3. UNACID [Concomitant]
     Dosage: UNK
     Dates: start: 20130117
  4. CLINDAMYCIN [Concomitant]
     Dosage: UNK
     Dates: start: 20130117
  5. AMITRIPTYLIN [Concomitant]
     Dosage: UNK
     Dates: start: 20130126

REACTIONS (1)
  - Convulsion [Recovered/Resolved]
